FAERS Safety Report 8837557 (Version 3)
Quarter: 2013Q1

REPORT INFORMATION
  Report Type: Spontaneous
  Country: NL (occurrence: NL)
  Receive Date: 20121012
  Receipt Date: 20130123
  Transmission Date: 20140127
  Serious: Yes (Other)
  Sender: FDA-Public Use
  Company Number: NL-PFIZER INC-2012250107

PATIENT
  Age: 66 Year
  Sex: Female

DRUGS (5)
  1. ATORVASTATIN PFIZER [Suspect]
     Dosage: UNK
  2. ATORVASTATIN PFIZER [Suspect]
     Dosage: UNK
     Dates: start: 201210
  3. NEXIUM [Concomitant]
     Dosage: 40 MG, TWICE DAILY
  4. METFORMIN [Concomitant]
     Dosage: 1000 MG, TWICE DAILY
  5. GLIMEPIRIDE [Concomitant]
     Dosage: 1.5 MG, ONCE DAILY

REACTIONS (3)
  - Abasia [Recovering/Resolving]
  - Respiratory tract irritation [Recovering/Resolving]
  - Pain in extremity [Recovering/Resolving]
